FAERS Safety Report 10527768 (Version 1)
Quarter: 2014Q4

REPORT INFORMATION
  Report Type: Spontaneous
  Country: AU (occurrence: None)
  Receive Date: 20141016
  Receipt Date: 20141016
  Transmission Date: 20150528
  Serious: Yes (Other)
  Sender: FDA-Public Use
  Company Number: 2014-20469

PATIENT
  Age: 60 Year
  Sex: Female

DRUGS (1)
  1. EYLEA [Suspect]
     Active Substance: AFLIBERCEPT
     Indication: AGE-RELATED MACULAR DEGENERATION
     Route: 031
     Dates: start: 201409, end: 201409

REACTIONS (2)
  - Corneal abrasion [None]
  - Eye haemorrhage [None]

NARRATIVE: CASE EVENT DATE: 20140712
